FAERS Safety Report 14953226 (Version 1)
Quarter: 2018Q2

REPORT INFORMATION
  Report Type: Spontaneous
  Country: US (occurrence: US)
  Receive Date: 20180509
  Receipt Date: 20180509
  Transmission Date: 20180711
  Serious: Yes (Death)
  Sender: FDA-Public Use
  Company Number: None

PATIENT
  Age: 60 Year
  Sex: Female
  Weight: 67.1 kg

DRUGS (19)
  1. MEMANTINE. [Concomitant]
     Active Substance: MEMANTINE
  2. METHADONE [Concomitant]
     Active Substance: METHADONE HYDROCHLORIDE
  3. AMLODIPINE [Concomitant]
     Active Substance: AMLODIPINE BESYLATE
  4. DOLUTEGRAVIR [Concomitant]
     Active Substance: DOLUTEGRAVIR
  5. TRAZODONE [Concomitant]
     Active Substance: TRAZODONE HYDROCHLORIDE
  6. LACTULOSE. [Concomitant]
     Active Substance: LACTULOSE
  7. METOPROLOL TARTRATE. [Concomitant]
     Active Substance: METOPROLOL TARTRATE
  8. EMTRICITABINE-TENOFOVIR ALAFAN (EMTRICITABINE-TENOFOVIR ALAFENAMIDE) [Concomitant]
  9. GABAPENTIN. [Concomitant]
     Active Substance: GABAPENTIN
  10. LISINOPRIL. [Concomitant]
     Active Substance: LISINOPRIL
  11. LORAZEPAM. [Concomitant]
     Active Substance: LORAZEPAM
  12. TYLENOL [Concomitant]
     Active Substance: ACETAMINOPHEN
  13. EPCLUSA [Suspect]
     Active Substance: SOFOSBUVIR\VELPATASVIR
     Indication: HEPATITIS C
     Dosage: 400-100 MG QD PO
     Route: 048
     Dates: start: 20180207
  14. LEVETIRACETAM. [Concomitant]
     Active Substance: LEVETIRACETAM
  15. LOPERAMIDE [Concomitant]
     Active Substance: LOPERAMIDE
  16. OLANZAPINE. [Concomitant]
     Active Substance: OLANZAPINE
  17. TRAMADOL. [Concomitant]
     Active Substance: TRAMADOL
  18. MECLIZINE [Concomitant]
     Active Substance: MECLIZINE HYDROCHLORIDE
  19. MELATONIN [Concomitant]
     Active Substance: MELATONIN

REACTIONS (10)
  - Cough [None]
  - Heart rate increased [None]
  - Diarrhoea [None]
  - Asthenia [None]
  - Blood creatinine abnormal [None]
  - Confusional state [None]
  - Slow speech [None]
  - Disorientation [None]
  - Blood potassium increased [None]
  - Protein urine present [None]

NARRATIVE: CASE EVENT DATE: 20180403
